FAERS Safety Report 12079664 (Version 3)
Quarter: 2016Q2

REPORT INFORMATION
  Report Type: Spontaneous
  Country: US (occurrence: US)
  Receive Date: 20160216
  Receipt Date: 20160531
  Transmission Date: 20160815
  Serious: Yes (Other)
  Sender: FDA-Public Use
  Company Number: US-PFIZER INC-2016075800

PATIENT
  Age: 57 Year
  Sex: Female
  Weight: 68 kg

DRUGS (3)
  1. IBRANCE [Suspect]
     Active Substance: PALBOCICLIB
     Dosage: 100 MG, CYCLIC (D1-D21 Q 28D)
     Route: 048
     Dates: start: 20151112
  2. IBRANCE [Suspect]
     Active Substance: PALBOCICLIB
     Dosage: 125 MG, CYCLIC (DAYS 1-21 Q28 DAYS)
     Route: 048
     Dates: start: 20151112, end: 20160526
  3. IBRANCE [Suspect]
     Active Substance: PALBOCICLIB
     Indication: BREAST CANCER METASTATIC
     Dosage: 100 MG, CYCLIC (1 TAB DAILY/ DAY 1-21)
     Route: 048
     Dates: start: 20151112

REACTIONS (7)
  - Nasal congestion [Unknown]
  - Breast cancer metastatic [Unknown]
  - Neutropenia [Unknown]
  - White blood cell count decreased [Unknown]
  - Viral upper respiratory tract infection [Unknown]
  - Disease progression [Unknown]
  - Muscle spasms [Unknown]

NARRATIVE: CASE EVENT DATE: 20160422
